FAERS Safety Report 9665634 (Version 3)
Quarter: 2014Q2

REPORT INFORMATION
  Report Type: Spontaneous
  Country: GB (occurrence: GB)
  Receive Date: 20131104
  Receipt Date: 20140501
  Transmission Date: 20141212
  Serious: Yes (Hospitalization, Other)
  Sender: FDA-Public Use
  Company Number: GB-ABBVIE-13P-167-1165001-00

PATIENT
  Age: 34 Year
  Sex: Female

DRUGS (9)
  1. KALETRA [Suspect]
     Indication: ANTIRETROVIRAL THERAPY
     Dosage: 4 TABLETS/CAPSULES DAILY, TWICE A DAY
     Route: 048
     Dates: start: 20130201, end: 20130214
  2. ISENTRESS [Suspect]
     Indication: ANTIRETROVIRAL THERAPY
     Dosage: 400MG, TWICE A DAY. GESTATION 26 WEEKS, START PERIOD 63 DAYS
     Route: 048
     Dates: start: 20130319, end: 20130521
  3. TRUVADA [Suspect]
     Indication: ANTIRETROVIRAL THERAPY
     Dosage: 1 TABLET/CAPSULE DAILY, START PERIOD 109 DAYS
     Route: 048
     Dates: start: 20130201, end: 20130214
  4. TRUVADA [Suspect]
     Dosage: 1 TABLET/CAPSULE DAILY, START PERIOD: 63 DAYS
     Route: 048
     Dates: start: 20130319, end: 20130521
  5. PROCHLORPERAZINE MALEATE [Concomitant]
     Indication: NAUSEA
  6. METHYLDOPA [Concomitant]
     Indication: HYPERTENSION
     Route: 048
  7. METOCLOPRAMIDE [Concomitant]
     Indication: NAUSEA
  8. LABETALOL [Concomitant]
     Indication: PRODUCT USED FOR UNKNOWN INDICATION
     Dosage: GESTATION PERIOD 32 WEEKS
  9. ANTIBIOTICS [Concomitant]
     Indication: PRODUCT USED FOR UNKNOWN INDICATION

REACTIONS (7)
  - Vomiting in pregnancy [Unknown]
  - Hepatic function abnormal [Unknown]
  - Vomiting in pregnancy [Unknown]
  - Vomiting in pregnancy [Unknown]
  - Hepatotoxicity [Unknown]
  - Pre-eclampsia [Unknown]
  - Premature labour [Unknown]
